FAERS Safety Report 22790276 (Version 3)
Quarter: 2024Q4

REPORT INFORMATION
  Report Type: Report from Study
  Country: EG (occurrence: EG)
  Receive Date: 20230805
  Receipt Date: 20241125
  Transmission Date: 20250115
  Serious: Yes (Life-Threatening, Hospitalization, Disabling, Other)
  Sender: NOVARTIS
  Company Number: EG-002147023-NVSC2023EG159505

PATIENT
  Age: 51 Year
  Sex: Male

DRUGS (10)
  1. LEQVIO [Suspect]
     Active Substance: INCLISIRAN SODIUM
     Indication: Hypercholesterolaemia
     Dosage: 284 MG (ONE DOSE INITIALLY, SECOND DOSE AFTER 3 MONTHS AND THEN TO BE EVERY 6 MONTHS)
     Route: 058
     Dates: start: 202304
  2. LEQVIO [Suspect]
     Active Substance: INCLISIRAN SODIUM
     Dosage: 284 MG (ONE DOSE INITIALLY, SECOND DOSE AFTER 3 MONTHS AND THEN TO BE EVERY 6 MONTHS)
     Route: 058
     Dates: start: 20230710
  3. PLAVIX [Concomitant]
     Active Substance: CLOPIDOGREL BISULFATE
     Indication: Anticoagulant therapy
     Dosage: 1 DOSAGE FORM, QD (THE PATIENT COULDN^T REMEMBER THE EXACT DATE)
     Route: 048
     Dates: start: 2015
  4. VASTAREL [Concomitant]
     Active Substance: TRIMETAZIDINE DIHYDROCHLORIDE
     Indication: Cardiac disorder
     Dosage: 1 DOSAGE FORM, QD (THE PATIENT COULDN^T REMEMBER THE EXACT DATE)
     Route: 048
     Dates: start: 2015
  5. VASTAREL [Concomitant]
     Active Substance: TRIMETAZIDINE DIHYDROCHLORIDE
     Indication: Anticoagulant therapy
  6. NEBIVOLOL HYDROCHLORIDE [Concomitant]
     Active Substance: NEBIVOLOL HYDROCHLORIDE
     Indication: Prophylaxis
     Dosage: UNK, QD (THE PATIENT COULDN^T REMEMBER THE EXACT DATE)
     Route: 048
     Dates: start: 2015
  7. RAMIPRIL [Concomitant]
     Active Substance: RAMIPRIL
     Indication: Anticoagulant therapy
     Dosage: 1 DOSAGE FORM, QD (TABLET)
     Route: 048
  8. GLUCOPHAGE [Concomitant]
     Active Substance: METFORMIN HYDROCHLORIDE
     Indication: Diabetes mellitus
     Dosage: 1 DOSAGE FORM, QD (TABLET)
     Route: 048
     Dates: start: 2023
  9. Dapablix [Concomitant]
     Indication: Diabetes mellitus
     Dosage: 1 DOSAGE FORM, QD (TABLET)
     Route: 048
     Dates: start: 2023
  10. NITRO MAK RETARD [Concomitant]
     Indication: Product used for unknown indication
     Dosage: 2.5 MG, BID (CAPSULE)
     Route: 048
     Dates: start: 20241122

REACTIONS (26)
  - Thrombosis [Recovering/Resolving]
  - Angina pectoris [Recovering/Resolving]
  - Hypoxia [Recovering/Resolving]
  - Chest pain [Recovering/Resolving]
  - Fall [Recovering/Resolving]
  - Diabetes mellitus [Recovering/Resolving]
  - Tachycardia [Recovering/Resolving]
  - Dyspnoea [Recovering/Resolving]
  - Coagulation time prolonged [Unknown]
  - Fatigue [Recovering/Resolving]
  - Orthostatic hypotension [Recovering/Resolving]
  - Dizziness [Recovering/Resolving]
  - Hypersomnia [Recovering/Resolving]
  - Lethargy [Recovering/Resolving]
  - Balance disorder [Recovering/Resolving]
  - Vision blurred [Recovering/Resolving]
  - Blood cholesterol increased [Not Recovered/Not Resolved]
  - Blood glucose increased [Unknown]
  - Pyrexia [Recovering/Resolving]
  - Vomiting [Recovering/Resolving]
  - Weight decreased [Not Recovered/Not Resolved]
  - Gastric dilatation [Not Recovered/Not Resolved]
  - Nausea [Recovering/Resolving]
  - Diarrhoea [Recovering/Resolving]
  - Hepatic steatosis [Unknown]
  - Product use issue [Unknown]

NARRATIVE: CASE EVENT DATE: 20230630
